FAERS Safety Report 24421284 (Version 3)
Quarter: 2024Q4

REPORT INFORMATION
  Report Type: Spontaneous
  Country: US (occurrence: US)
  Receive Date: 20241010
  Receipt Date: 20241209
  Transmission Date: 20250114
  Serious: No
  Sender: AMGEN
  Company Number: US-AMGEN-USASP2024200021

PATIENT
  Age: 60 Year
  Sex: Female
  Weight: 81.633 kg

DRUGS (7)
  1. TEPEZZA [Suspect]
     Active Substance: TEPROTUMUMAB-TRBW
     Indication: Toxic goitre
     Dosage: 790 MILLIGRAM, Q3WK  (790 MG INTR^ENOUS INFUSION GIVE DOSES 2 TO 8 INTRAVENOUSLY EVERY 3 WEEKS THERE
     Route: 042
     Dates: start: 20241001
  2. TEPEZZA [Suspect]
     Active Substance: TEPROTUMUMAB-TRBW
     Indication: Salpingo-oophoritis
     Dosage: 1580 MILLIGRAM, Q3WK (1580 MG OF TEPEZZA INTRAVENOUSLY FOR DOSES 2 TO S. INFUSE SECOND DOSE OVER 90
     Route: 040
  3. TEPEZZA [Suspect]
     Active Substance: TEPROTUMUMAB-TRBW
     Indication: Eye disorder
     Dosage: 1580 MILLIGRAM, Q3WK (1580 MG OF TEPEZZA INTRAVENOUSLY FOR DOSES 2 TO S. INFUSE SECOND DOSE OVER 90
     Route: 040
  4. TEPEZZA [Suspect]
     Active Substance: TEPROTUMUMAB-TRBW
     Indication: Endocrine ophthalmopathy
  5. METHIMAZOLE [Concomitant]
     Active Substance: METHIMAZOLE
     Dosage: 10 MILLIGRAM
     Route: 065
  6. WATER FOR INJECTION [Concomitant]
     Active Substance: WATER
     Dosage: UNK
     Route: 065
  7. SODIUM CHLORIDE [Concomitant]
     Active Substance: SODIUM CHLORIDE
     Dosage: UNK
     Route: 065

REACTIONS (8)
  - Pain [Unknown]
  - Influenza [Unknown]
  - Adverse drug reaction [Unknown]
  - Illness [Unknown]
  - Nausea [Recovering/Resolving]
  - Influenza like illness [Recovering/Resolving]
  - Cough [Recovering/Resolving]
  - Alopecia [Unknown]

NARRATIVE: CASE EVENT DATE: 20240101
